FAERS Safety Report 6756101-6 (Version None)
Quarter: 2010Q2

REPORT INFORMATION
  Report Type: 
  Country: None (occurrence: None)
  Receive Date: 20100604
  Receipt Date: 20100601
  Transmission Date: 20101027
  Serious: Yes (Death, Other)
  Sender: FDA-Public Use
  Company Number: US-PURDUE-USA-2010-0044313

PATIENT
  Age: 32 Year
  Sex: Female

DRUGS (3)
  1. MORPHINE SULFATE [Suspect]
     Indication: DRUG ABUSE
  2. COCAINE [Suspect]
     Indication: DRUG ABUSE
  3. HYDROCODONE [Suspect]
     Indication: DRUG ABUSE

REACTIONS (2)
  - DROWNING [None]
  - SUBSTANCE ABUSE [None]
